FAERS Safety Report 21138623 (Version 3)
Quarter: 2022Q3

REPORT INFORMATION
  Report Type: Spontaneous
  Country: US (occurrence: US)
  Receive Date: 20220727
  Receipt Date: 20220928
  Transmission Date: 20221027
  Serious: No
  Sender: FDA-Public Use
  Company Number: US-LUPIN PHARMACEUTICALS INC.-2022-09737

PATIENT
  Sex: Male
  Weight: 126.98 kg

DRUGS (1)
  1. TESTOSTERONE [Suspect]
     Active Substance: TESTOSTERONE
     Indication: Male sexual dysfunction
     Dosage: UNK (ONE TIME IN DAY ONE PUMP IN EACH ARMPIT)
     Route: 061

REACTIONS (3)
  - Device malfunction [Unknown]
  - Incorrect dose administered by device [Unknown]
  - No adverse event [Unknown]
